FAERS Safety Report 20374087 (Version 1)
Quarter: 2022Q1

REPORT INFORMATION
  Report Type: Report from Study
  Country: DE (occurrence: DE)
  Receive Date: 20220125
  Receipt Date: 20220125
  Transmission Date: 20220423
  Serious: Yes (Other)
  Sender: FDA-Public Use
  Company Number: DE-MYLANLABS-2022M1005740

PATIENT
  Age: 73 Year
  Sex: Male

DRUGS (14)
  1. DOXORUBICIN [Suspect]
     Active Substance: DOXORUBICIN
     Indication: Leiomyosarcoma metastatic
     Dosage: UNK UNK, CYCLE
     Route: 065
  2. DOXORUBICIN [Suspect]
     Active Substance: DOXORUBICIN
     Indication: Pancreatic sarcoma
  3. GEMCITABINE [Suspect]
     Active Substance: GEMCITABINE
     Indication: Leiomyosarcoma metastatic
     Dosage: UNK UNK, CYCLE, PART OF COMBINED THERAPY
     Route: 065
  4. GEMCITABINE [Suspect]
     Active Substance: GEMCITABINE
     Indication: Pancreatic sarcoma
  5. DOCETAXEL [Suspect]
     Active Substance: DOCETAXEL
     Indication: Leiomyosarcoma metastatic
     Dosage: UNK, CYCLE, PART OF COMBINED THERAPY
     Route: 065
  6. DOCETAXEL [Suspect]
     Active Substance: DOCETAXEL
     Indication: Pancreatic sarcoma
  7. GEMCITABINE [Suspect]
     Active Substance: GEMCITABINE
     Indication: Leiomyosarcoma metastatic
     Dosage: 900 MILLIGRAM/SQ. METER, CYCLE, INFUSION,  MAINTENANCE MONOTHERAPY; 900 MG/M2 ADMINISTERED ON DAYS 1
     Route: 065
  8. GEMCITABINE [Suspect]
     Active Substance: GEMCITABINE
     Indication: Pancreatic sarcoma
  9. DACARBAZINE [Suspect]
     Active Substance: DACARBAZINE
     Indication: Leiomyosarcoma metastatic
     Dosage: UNK
     Route: 065
  10. DACARBAZINE [Suspect]
     Active Substance: DACARBAZINE
     Indication: Pancreatic sarcoma
  11. PAZOPANIB [Suspect]
     Active Substance: PAZOPANIB
     Indication: Leiomyosarcoma metastatic
     Dosage: UNK
     Route: 065
  12. PAZOPANIB [Suspect]
     Active Substance: PAZOPANIB
     Indication: Pancreatic sarcoma
  13. OLARATUMAB [Suspect]
     Active Substance: OLARATUMAB
     Indication: Leiomyosarcoma metastatic
     Dosage: UNK UNK, CYCLE
     Route: 065
  14. OLARATUMAB [Suspect]
     Active Substance: OLARATUMAB
     Indication: Pancreatic sarcoma

REACTIONS (4)
  - Leukopenia [Unknown]
  - Neutropenia [Unknown]
  - Drug ineffective [Unknown]
  - Off label use [Unknown]
